FAERS Safety Report 17034921 (Version 2)
Quarter: 2019Q4

REPORT INFORMATION
  Report Type: Report from Study
  Country: CA (occurrence: CA)
  Receive Date: 20191115
  Receipt Date: 20191204
  Transmission Date: 20200122
  Serious: Yes (Other)
  Sender: FDA-Public Use
  Company Number: CA-GLAXOSMITHKLINE-CA2019AMR198250

PATIENT
  Age: 54 Year
  Sex: Female

DRUGS (4)
  1. VENTOLIN [Suspect]
     Active Substance: ALBUTEROL SULFATE
  2. MEPOLIZUMAB [Suspect]
     Active Substance: MEPOLIZUMAB
     Dosage: 100 MG, Z
  3. MEPOLIZUMAB [Suspect]
     Active Substance: MEPOLIZUMAB
     Indication: ASTHMA
     Dosage: 100 MG, Z
     Route: 042
     Dates: start: 20191030
  4. PULMICORT TURBUHALER [Suspect]
     Active Substance: BUDESONIDE
     Indication: PRODUCT USED FOR UNKNOWN INDICATION
     Dosage: 2 DF, TID,400

REACTIONS (19)
  - Pulmonary eosinophilia [Unknown]
  - Eye pain [Unknown]
  - Dyspnoea [Unknown]
  - Lung infiltration [Unknown]
  - Choking sensation [Unknown]
  - Cough [Unknown]
  - Back pain [Unknown]
  - Hypoaesthesia eye [Unknown]
  - Nausea [Recovered/Resolved]
  - Sputum discoloured [Unknown]
  - Rhinorrhoea [Unknown]
  - Epistaxis [Unknown]
  - Chest pain [Unknown]
  - Pneumonia [Unknown]
  - Eye paraesthesia [Unknown]
  - Hypoaesthesia [Unknown]
  - Blood pressure increased [Unknown]
  - Pharyngeal paraesthesia [Unknown]
  - Productive cough [Unknown]

NARRATIVE: CASE EVENT DATE: 20191030
